FAERS Safety Report 8979206 (Version 1)
Quarter: 2012Q4

REPORT INFORMATION
  Report Type: Report from Study
  Country: FR (occurrence: FR)
  Receive Date: 20121221
  Receipt Date: 20121221
  Transmission Date: 20130627
  Serious: Yes (Hospitalization, Other)
  Sender: FDA-Public Use
  Company Number: FR-PURDUE-USA-2012-0097141

PATIENT
  Age: 59 Year
  Sex: Male

DRUGS (3)
  1. OXYCONTIN (NDA 22-272) [Suspect]
     Indication: PAIN
     Dosage: 15 mg, bid
     Route: 048
     Dates: start: 20111006, end: 20111011
  2. CRIZOTINIB [Suspect]
     Indication: NON-SMALL CELL LUNG CANCER
     Dosage: 250 mg, bid
     Route: 048
     Dates: start: 20110923, end: 20111010
  3. CRIZOTINIB [Suspect]
     Dosage: UNK
     Dates: start: 20111013

REACTIONS (2)
  - Venous thrombosis [Not Recovered/Not Resolved]
  - Confusional state [Recovered/Resolved]
